FAERS Safety Report 6889006-0 (Version None)
Quarter: 2010Q3

REPORT INFORMATION
  Report Type: 
  Country: None (occurrence: None)
  Receive Date: 20100730
  Receipt Date: 20071217
  Transmission Date: 20110219
  Serious: No
  Sender: FDA-Public Use
  Company Number: US-PFIZER INC-2007064467

PATIENT
  Sex: Female
  Weight: 54.43 kg

DRUGS (3)
  1. LIPITOR [Suspect]
     Indication: HYPERLIPIDAEMIA
     Route: 048
     Dates: start: 20010101
  2. CONTRACEPTIVE, UNSPECIFIED [Concomitant]
     Route: 048
  3. LEVLITE [Concomitant]

REACTIONS (10)
  - BLOOD BILIRUBIN INCREASED [None]
  - BLOOD CHOLESTEROL INCREASED [None]
  - BLOOD URINE PRESENT [None]
  - COUGH [None]
  - HEADACHE [None]
  - HIGH DENSITY LIPOPROTEIN INCREASED [None]
  - NEPHROLITHIASIS [None]
  - OTITIS MEDIA [None]
  - PHARYNGITIS [None]
  - SINUSITIS [None]
